FAERS Safety Report 21664819 (Version 2)
Quarter: 2025Q4

REPORT INFORMATION
  Report Type: Report from Study
  Country: CO (occurrence: CO)
  Receive Date: 20221130
  Receipt Date: 20251106
  Transmission Date: 20260118
  Serious: Yes (Hospitalization)
  Sender: BAYER HEALTHCARE PHARMACEUTICALS INC.
  Company Number: CO-BAYER-2022A164885

PATIENT
  Age: 80 Year
  Sex: Male

DRUGS (2)
  1. NUBEQA [Suspect]
     Active Substance: DAROLUTAMIDE
     Indication: Hormone-refractory prostate cancer
     Dosage: 600 MG, BID -
     Route: 048
     Dates: start: 20220826, end: 2022
  2. NUBEQA [Suspect]
     Active Substance: DAROLUTAMIDE
     Indication: Hormone-refractory prostate cancer
     Dosage: 600 MG, BID - 2 PILLS IN THE AM AND 2 PILLS IN THE PM
     Route: 048
     Dates: start: 20220919, end: 202505

REACTIONS (1)
  - Heart rate decreased [Recovered/Resolved with Sequelae]

NARRATIVE: CASE EVENT DATE: 20221116
